FAERS Safety Report 15963307 (Version 5)
Quarter: 2020Q1

REPORT INFORMATION
  Report Type: Spontaneous
  Country: JP (occurrence: JP)
  Receive Date: 20190214
  Receipt Date: 20200311
  Transmission Date: 20200409
  Serious: Yes (Death, Hospitalization, Other)
  Sender: FDA-Public Use
  Company Number: JP-ASTRAZENECA-2019SE06279

PATIENT
  Age: 28758 Day
  Sex: Male
  Weight: 49 kg

DRUGS (13)
  1. FEBURIC [Suspect]
     Active Substance: FEBUXOSTAT
     Route: 048
  2. SENNOSIDE [Suspect]
     Active Substance: SENNOSIDES
     Dosage: DOSE UNKNOWN
     Route: 065
  3. IRESSA [Suspect]
     Active Substance: GEFITINIB
     Indication: NON-SMALL CELL LUNG CANCER
     Route: 048
     Dates: start: 20170314, end: 20170720
  4. MUCOSOLVAN [Suspect]
     Active Substance: AMBROXOL HYDROCHLORIDE
     Route: 048
  5. MUCODYNE [Suspect]
     Active Substance: CARBOCYSTEINE
     Route: 048
  6. TRAMCET [Suspect]
     Active Substance: ACETAMINOPHEN\TRAMADOL
     Dosage: TRAMADOL HYDROCHLORIDE 37.5 MG/ACETAMINOPHEN COMBINED DRUG 325 MG, TWO TIMES A DAY
     Route: 048
  7. MAGMITT [Suspect]
     Active Substance: MAGNESIUM OXIDE
     Dosage: DOSE UNKNOWN
     Route: 065
  8. GASMOTIN [Suspect]
     Active Substance: MOSAPRIDE CITRATE
     Route: 048
  9. TAGRISSO [Suspect]
     Active Substance: OSIMERTINIB
     Indication: NON-SMALL CELL LUNG CANCER
     Route: 048
     Dates: start: 20180823, end: 20190107
  10. URIEF [Suspect]
     Active Substance: SILODOSIN
     Route: 048
  11. AMLODIPINE [Suspect]
     Active Substance: AMLODIPINE BESYLATE
     Route: 048
  12. LYRICA [Suspect]
     Active Substance: PREGABALIN
     Route: 048
  13. LOXONIN [Suspect]
     Active Substance: LOXOPROFEN SODIUM
     Dosage: DOSE UNKNOWN
     Route: 065

REACTIONS (3)
  - Skin disorder [Recovering/Resolving]
  - Stomatitis [Recovering/Resolving]
  - Lung disorder [Fatal]

NARRATIVE: CASE EVENT DATE: 20170525
